FAERS Safety Report 4318484-6 (Version None)
Quarter: 2004Q1

REPORT INFORMATION
  Report Type: 
  Country: None (occurrence: None)
  Receive Date: 20040316
  Receipt Date: 20040316
  Transmission Date: 20041129
  Serious: Yes (Other)
  Sender: FDA-Public Use
  Company Number: None

PATIENT
  Age: 28 Year
  Sex: Female
  Weight: 72.5755 kg

DRUGS (2)
  1. PAXIL [Suspect]
     Indication: DEPRESSION
     Dosage: 20 MG/1 A DAY (ORAL) PILL FORM
     Dates: start: 19940101, end: 20040101
  2. PAXIL [Suspect]
     Indication: PAIN
     Dosage: 20 MG/1 A DAY (ORAL) PILL FORM
     Dates: start: 19940101, end: 20040101

REACTIONS (6)
  - ANGER [None]
  - DEPRESSION [None]
  - HEADACHE [None]
  - HOSTILITY [None]
  - PAIN [None]
  - TREMOR [None]
